FAERS Safety Report 10334833 (Version 1)
Quarter: 2014Q3

REPORT INFORMATION
  Report Type: Spontaneous
  Country: US (occurrence: None)
  Receive Date: 20140722
  Receipt Date: 20140722
  Transmission Date: 20150326
  Serious: Yes (Life-Threatening, Other)
  Sender: FDA-Public Use
  Company Number: None

PATIENT
  Age: 52 Year
  Sex: Female
  Weight: 90.27 kg

DRUGS (5)
  1. CVS EXTRA STRENGTH ACETOMINAPHEN [Concomitant]
  2. ABILIFY [Suspect]
     Active Substance: ARIPIPRAZOLE
     Indication: BIPOLAR I DISORDER
     Dosage: 1 PILL AT BEDTIME BY MOUTH
     Route: 048
     Dates: start: 20140530
  3. ABILIFY [Suspect]
     Active Substance: ARIPIPRAZOLE
     Dosage: 1 PILL AT BEDTIME BY MOUTH
     Route: 048
     Dates: start: 20140530
  4. WOMEN^S DAILY MULTIVITAMIN [Concomitant]
  5. NATURE^S MADE BIOTIN [Concomitant]

REACTIONS (5)
  - Drug interaction [None]
  - Weight increased [None]
  - Sexual dysfunction [None]
  - Adverse event [None]
  - Withdrawal syndrome [None]

NARRATIVE: CASE EVENT DATE: 20140609
